FAERS Safety Report 7260907-7 (Version None)
Quarter: 2011Q1

REPORT INFORMATION
  Report Type: 
  Country: None (occurrence: None)
  Receive Date: 20110130
  Receipt Date: 20101221
  Transmission Date: 20110831
  Serious: No
  Sender: FDA-Public Use
  Company Number: US-ABBOTT-10P-163-0693798-00

PATIENT
  Weight: 81.266 kg

DRUGS (1)
  1. HUMIRA [Suspect]
     Indication: RHEUMATOID ARTHRITIS
     Dates: start: 20050101

REACTIONS (5)
  - NASOPHARYNGITIS [None]
  - PAIN [None]
  - OROPHARYNGEAL PAIN [None]
  - INJECTION SITE PAIN [None]
  - NASAL CONGESTION [None]
